FAERS Safety Report 20010576 (Version 2)
Quarter: 2021Q4

REPORT INFORMATION
  Report Type: Spontaneous
  Country: US (occurrence: US)
  Receive Date: 20211029
  Receipt Date: 20211123
  Transmission Date: 20220303
  Serious: No
  Sender: FDA-Public Use
  Company Number: US-009507513-2110USA004969

PATIENT
  Age: 19 Year
  Sex: Female

DRUGS (3)
  1. PROVENTIL [Suspect]
     Active Substance: ALBUTEROL
  2. MONTELUKAST SODIUM [Suspect]
     Active Substance: MONTELUKAST SODIUM
     Route: 048
  3. BUDESONIDE [Suspect]
     Active Substance: BUDESONIDE
     Dosage: INHALATION

REACTIONS (1)
  - Maternal exposure during pregnancy [Unknown]
